FAERS Safety Report 8870580 (Version 2)
Quarter: 2013Q2

REPORT INFORMATION
  Report Type: Spontaneous
  Country: US (occurrence: US)
  Receive Date: 20121023
  Receipt Date: 20130624
  Transmission Date: 20140414
  Serious: Yes (Other)
  Sender: FDA-Public Use
  Company Number: US-AMGEN-USASP2012021368

PATIENT
  Age: 64 Year
  Sex: Female

DRUGS (1)
  1. ENBREL [Suspect]
     Indication: RHEUMATOID ARTHRITIS
     Dosage: 50 MG, QWK
     Route: 058
     Dates: start: 20110124

REACTIONS (5)
  - Vascular pseudoaneurysm [Recovered/Resolved]
  - Aneurysm [Unknown]
  - Hip fracture [Unknown]
  - Pain in extremity [Not Recovered/Not Resolved]
  - Collateral circulation [Not Recovered/Not Resolved]
